FAERS Safety Report 10203465 (Version 1)
Quarter: 2014Q2

REPORT INFORMATION
  Report Type: Spontaneous
  Country: CA (occurrence: None)
  Receive Date: 20140523
  Receipt Date: 20140523
  Transmission Date: 20141212
  Serious: Yes (Other)
  Sender: FDA-Public Use
  Company Number: 2014000148

PATIENT
  Age: 83 Year
  Sex: Female
  Weight: 57 kg

DRUGS (3)
  1. ACEON (PERINDOPRIL ERBUMINE) TABLET, 4MG [Suspect]
     Indication: PRODUCT USED FOR UNKNOWN INDICATION
     Route: 048
  2. AZITHROMYCIN [Concomitant]
  3. FUROSEMIDE [Concomitant]

REACTIONS (2)
  - Throat tightness [None]
  - Swollen tongue [None]
